FAERS Safety Report 19986331 (Version 1)
Quarter: 2021Q4

REPORT INFORMATION
  Report Type: Spontaneous
  Country: US (occurrence: US)
  Receive Date: 20211022
  Receipt Date: 20211022
  Transmission Date: 20220303
  Serious: Yes (Other)
  Sender: FDA-Public Use
  Company Number: US-SA-SAC20211022000214

PATIENT
  Age: 50 Year
  Sex: Female

DRUGS (8)
  1. DUPIXENT [Suspect]
     Active Substance: DUPILUMAB
     Indication: Dermatitis atopic
     Dosage: 300 MG, QOW
     Route: 058
     Dates: start: 201906
  2. ADVIL [Concomitant]
     Active Substance: IBUPROFEN
  3. HYDROCORTISONE [Concomitant]
     Active Substance: HYDROCORTISONE
  4. TYLENOL [Concomitant]
     Active Substance: ACETAMINOPHEN
  5. MAGNESIUM [Concomitant]
     Active Substance: MAGNESIUM
  6. VITAMINS NOS [Concomitant]
     Active Substance: VITAMINS
  7. PROBIOTIC ACIDOPHILUS [LACTOBACILLUS ACIDOPHILUS] [Concomitant]
  8. OMEGA-3 FATTY ACIDS [Concomitant]
     Active Substance: OMEGA-3 FATTY ACIDS

REACTIONS (5)
  - Spinal cord oedema [Unknown]
  - Back pain [Unknown]
  - Arthritis [Unknown]
  - Bone swelling [Unknown]
  - Arthralgia [Unknown]

NARRATIVE: CASE EVENT DATE: 20190101
